FAERS Safety Report 4426317-2 (Version None)
Quarter: 2004Q3

REPORT INFORMATION
  Report Type: 
  Country: None (occurrence: None)
  Receive Date: 20040811
  Receipt Date: 20040729
  Transmission Date: 20050211
  Serious: Yes (Hospitalization)
  Sender: FDA-Public Use
  Company Number: K200401145

PATIENT
  Age: 52 Year
  Sex: Male

DRUGS (9)
  1. ALTACE [Suspect]
     Dosage: ORAL;  1 CAPSULE, QD, ORAL;  5 MG, QD, ORAL
     Route: 048
     Dates: start: 20040401, end: 20040601
  2. ALTACE [Suspect]
     Dosage: ORAL;  1 CAPSULE, QD, ORAL;  5 MG, QD, ORAL
     Route: 048
     Dates: start: 20040601
  3. APROVEL (IRBESARTAN ) TABLET, 300MG [Suspect]
     Dosage: 300 MG, QD, ORAL;  150 MG, QD, ORAL
     Route: 048
     Dates: end: 20040608
  4. APROVEL (IRBESARTAN ) TABLET, 300MG [Suspect]
     Dosage: 300 MG, QD, ORAL;  150 MG, QD, ORAL
     Route: 048
     Dates: start: 20040608
  5. ALDACTONE [Suspect]
     Dosage: 75 MG, QD, ORAL;
     Route: 048
     Dates: end: 20040401
  6. ALDACTONE [Suspect]
     Dosage: 75 MG, QD, ORAL;
     Route: 048
     Dates: end: 20040608
  7. LASIX [Concomitant]
  8. LIPANTHYL ^BRISTOL-MYERS SQUIBB^ (FENOFIBRATE) [Concomitant]
  9. BISOPROLOL FUMARATE [Concomitant]

REACTIONS (5)
  - DEHYDRATION [None]
  - HYPERKALAEMIA [None]
  - HYPERTRIGLYCERIDAEMIA [None]
  - HYPONATRAEMIA [None]
  - RENAL FAILURE ACUTE [None]
